FAERS Safety Report 17655719 (Version 1)
Quarter: 2020Q2

REPORT INFORMATION
  Report Type: Spontaneous
  Country: FR (occurrence: FR)
  Receive Date: 20200410
  Receipt Date: 20200410
  Transmission Date: 20200713
  Serious: Yes (Life-Threatening)
  Sender: FDA-Public Use
  Company Number: FR-TEVA-2020-FR-1221720

PATIENT
  Age: 40 Year
  Sex: Female
  Weight: 72 kg

DRUGS (8)
  1. DAFALGAN CODEINE [Concomitant]
     Active Substance: ACETAMINOPHEN\CODEINE PHOSPHATE
     Dosage: NR
     Route: 048
     Dates: start: 20200127
  2. DOXORUBICINE [Suspect]
     Active Substance: DOXORUBICIN
     Indication: THYMOMA
     Dosage: 50 MG/M2
     Route: 042
     Dates: start: 20200225, end: 20200225
  3. ENDOXAN [Suspect]
     Active Substance: CYCLOPHOSPHAMIDE
     Indication: THYMOMA
     Dosage: 500 MG/M2
     Route: 042
     Dates: start: 20200225, end: 20200225
  4. LEVOTHYROX 75 MICROGRAMMES, COMPRIM? S?CABLE [Concomitant]
     Active Substance: LEVOTHYROXINE SODIUM
     Dosage: 1 DF
     Route: 048
  5. SERESTA 10 MG, COMPRIM? [Concomitant]
     Active Substance: OXAZEPAM
     Dosage: 1 DF
     Route: 048
     Dates: start: 20200127
  6. CISPLATIN. [Suspect]
     Active Substance: CISPLATIN
     Indication: THYMOMA
     Dosage: 50 MG/M2
     Route: 042
     Dates: start: 20200225, end: 20200225
  7. SOLUPRED [Concomitant]
     Dosage: 180 MG
     Route: 048
     Dates: start: 20200222
  8. MESTINON [Concomitant]
     Active Substance: PYRIDOSTIGMINE BROMIDE
     Dosage: 3 DF
     Route: 048
     Dates: start: 20200217, end: 20200221

REACTIONS (2)
  - Myasthenia gravis crisis [Recovered/Resolved]
  - Respiratory distress [Recovered/Resolved]

NARRATIVE: CASE EVENT DATE: 20200226
